FAERS Safety Report 4566364-3 (Version None)
Quarter: 2005Q1

REPORT INFORMATION
  Report Type: 
  Country: None (occurrence: None)
  Receive Date: 20050201
  Receipt Date: 20040923
  Transmission Date: 20050727
  Serious: Yes (Other)
  Sender: FDA-Public Use
  Company Number: PHNR2004AU01644

PATIENT
  Age: 41 Year
  Sex: Female

DRUGS (6)
  1. EPILIM [Suspect]
  2. TOPAMAX [Concomitant]
  3. EFFEXOR XR [Concomitant]
  4. CEPHALEXIN [Concomitant]
  5. CLOZARIL [Suspect]
     Indication: SCHIZOPHRENIA
     Dosage: 12 - 500 MG DAILY
     Dates: start: 19960606, end: 20001004
  6. CLOZARIL [Suspect]
     Dosage: 50 - 757 MG/DAY
     Dates: start: 20020717

REACTIONS (18)
  - BLOOD ALBUMIN DECREASED [None]
  - BLOOD CALCIUM DECREASED [None]
  - BLOOD CHOLESTEROL DECREASED [None]
  - BLOOD CREATININE INCREASED [None]
  - BLOOD GLUCOSE FLUCTUATION [None]
  - BLOOD PHOSPHORUS INCREASED [None]
  - BLOOD SODIUM DECREASED [None]
  - BLOOD UREA INCREASED [None]
  - BLOOD URIC ACID INCREASED [None]
  - CONVULSION [None]
  - GAMMA-GLUTAMYLTRANSFERASE INCREASED [None]
  - HAEMATOCRIT DECREASED [None]
  - HAEMOGLOBIN DECREASED [None]
  - INCONTINENCE [None]
  - MEAN CELL VOLUME INCREASED [None]
  - METABOLIC DISORDER [None]
  - RED BLOOD CELL COUNT DECREASED [None]
  - THROMBOCYTOPENIA [None]
